FAERS Safety Report 5721183-7 (Version None)
Quarter: 2008Q2

REPORT INFORMATION
  Report Type: 
  Country: None (occurrence: None)
  Receive Date: 20080429
  Receipt Date: 20080422
  Transmission Date: 20081010
  Serious: Yes (Hospitalization)
  Sender: FDA-Public Use
  Company Number: D0056591A

PATIENT
  Age: 80 Year
  Sex: Female

DRUGS (5)
  1. ARIXTRA [Suspect]
     Indication: THROMBOSIS PROPHYLAXIS
     Dosage: 7.5MG PER DAY
     Route: 058
     Dates: start: 20071219, end: 20080104
  2. MARCUMAR [Suspect]
     Indication: THROMBOSIS PROPHYLAXIS
     Route: 048
     Dates: start: 20071230, end: 20080104
  3. ENOXAPARIN SODIUM [Concomitant]
     Indication: THROMBOSIS PROPHYLAXIS
     Route: 058
  4. MARCUMAR [Concomitant]
     Route: 048
     Dates: end: 20071219
  5. CARBIMAZOL [Concomitant]
     Indication: HYPERTHYROIDISM
     Dosage: 5MG PER DAY
     Route: 048

REACTIONS (8)
  - BODY TEMPERATURE INCREASED [None]
  - GASTRITIS HAEMORRHAGIC [None]
  - HAEMATOMA [None]
  - HAEMORRHAGE [None]
  - HAEMORRHAGIC ANAEMIA [None]
  - HIATUS HERNIA [None]
  - REFLUX OESOPHAGITIS [None]
  - URINARY TRACT INFECTION [None]
